FAERS Safety Report 17785794 (Version 1)
Quarter: 2020Q2

REPORT INFORMATION
  Report Type: Report from Study
  Country: US (occurrence: US)
  Receive Date: 20200514
  Receipt Date: 20200514
  Transmission Date: 20200714
  Serious: Yes (Hospitalization, Other)
  Sender: FDA-Public Use
  Company Number: US-ROCHE-2595495

PATIENT
  Age: 60 Year
  Sex: Female

DRUGS (2)
  1. OCREVUS [Suspect]
     Active Substance: OCRELIZUMAB
     Indication: RELAPSING MULTIPLE SCLEROSIS
     Dosage: 06/DEC/2017
     Route: 042
     Dates: start: 20171122
  2. OCREVUS [Suspect]
     Active Substance: OCRELIZUMAB
     Dosage: 09/MAY/2018, 24/OCT/2018, 10/APR/2019, 10/OCT/2019
     Route: 042

REACTIONS (10)
  - Wrist fracture [Recovered/Resolved]
  - Migraine [Not Recovered/Not Resolved]
  - Renal failure [Not Recovered/Not Resolved]
  - Breast mass [Not Recovered/Not Resolved]
  - Fall [Recovered/Resolved]
  - Lower limb fracture [Recovered/Resolved]
  - Cystitis [Not Recovered/Not Resolved]
  - Wrist fracture [Recovered/Resolved]
  - Osteoporosis [Not Recovered/Not Resolved]
  - Blood pressure inadequately controlled [Not Recovered/Not Resolved]

NARRATIVE: CASE EVENT DATE: 201901
